APPROVED DRUG PRODUCT: FLURAZEPAM HYDROCHLORIDE
Active Ingredient: FLURAZEPAM HYDROCHLORIDE
Strength: 30MG
Dosage Form/Route: CAPSULE;ORAL
Application: A071068 | Product #001
Applicant: CHARTWELL RX SCIENCES LLC
Approved: Nov 25, 1986 | RLD: No | RS: No | Type: DISCN